FAERS Safety Report 7928335 (Version 3)
Quarter: 2014Q2

REPORT INFORMATION
  Report Type: Spontaneous
  Country: US (occurrence: US)
  Receive Date: 20110503
  Receipt Date: 20140522
  Transmission Date: 20141212
  Serious: Yes (Other)
  Sender: FDA-Public Use
  Company Number: US-ROCHE-749396

PATIENT
  Age: 29 Year
  Sex: Female
  Weight: 61.2 kg

DRUGS (3)
  1. ACCUTANE [Suspect]
     Indication: ACNE
     Dosage: DOSE: ALTERNATE 40/80 MG DAILY
     Route: 065
  2. ACCUTANE [Suspect]
     Route: 065
     Dates: start: 200601, end: 200607
  3. ACCUTANE [Suspect]
     Route: 065
     Dates: start: 200607, end: 200701

REACTIONS (11)
  - Colitis ulcerative [Unknown]
  - Inflammatory bowel disease [Unknown]
  - Gastrointestinal injury [Unknown]
  - Gastrooesophageal reflux disease [Unknown]
  - Cholelithiasis [Unknown]
  - Fibromyalgia [Unknown]
  - Depression [Unknown]
  - Irritable bowel syndrome [Unknown]
  - Rectal polyp [Unknown]
  - White blood cell count increased [Unknown]
  - Blood cholesterol increased [Unknown]
